FAERS Safety Report 18208456 (Version 1)
Quarter: 2020Q3

REPORT INFORMATION
  Report Type: Spontaneous
  Country: PL (occurrence: PL)
  Receive Date: 20200828
  Receipt Date: 20200828
  Transmission Date: 20201103
  Serious: Yes (Hospitalization)
  Sender: FDA-Public Use
  Company Number: PL-PFIZER INC-2020332926

PATIENT
  Age: 71 Year
  Sex: Female
  Weight: 84 kg

DRUGS (1)
  1. CARBOPLATIN. [Suspect]
     Active Substance: CARBOPLATIN
     Indication: LUNG NEOPLASM
     Dosage: 450 MG (INFUSION WITH 500 ML 5% GLUCOSE)
     Route: 041
     Dates: start: 20191228, end: 20191228

REACTIONS (1)
  - Rash macular [Recovered/Resolved]

NARRATIVE: CASE EVENT DATE: 20191228
